FAERS Safety Report 14687826 (Version 3)
Quarter: 2018Q4

REPORT INFORMATION
  Report Type: Spontaneous
  Country: ES (occurrence: ES)
  Receive Date: 20180328
  Receipt Date: 20181206
  Transmission Date: 20190204
  Serious: Yes (Death)
  Sender: FDA-Public Use
  Company Number: ES-ROCHE-2090989

PATIENT
  Sex: Male

DRUGS (6)
  1. DACLATASVIR. [Suspect]
     Active Substance: DACLATASVIR
     Indication: HEPATITIS C
     Dosage: SCHEDULED FOR 12 WEEKS, DISCONTINUED BEFORE WEEK 8
     Route: 065
  2. ABACAVIR. [Concomitant]
     Active Substance: ABACAVIR
     Indication: HIV INFECTION
     Route: 065
  3. TENOFOVIR DISOPROXIL FUMARATE. [Concomitant]
     Active Substance: TENOFOVIR DISOPROXIL FUMARATE
     Indication: HIV INFECTION
     Route: 065
  4. RIBAVIRIN. [Suspect]
     Active Substance: RIBAVIRIN
     Indication: HEPATITIS C
     Dosage: SCHEDULED FOR 12 WEEKS, DISCONTINUED BEFORE WEEK 8
     Route: 048
  5. SOFOSBUVIR [Suspect]
     Active Substance: SOFOSBUVIR
     Indication: HEPATITIS C
     Dosage: SCHEDULED FOR 12 WEEKS, DISCONTINUED BEFORE WEEK 8
     Route: 065
  6. DACLATASVIR. [Suspect]
     Active Substance: DACLATASVIR
     Indication: HEPATITIS C VIRUS TEST

REACTIONS (1)
  - Lymphoma [Fatal]
